FAERS Safety Report 23971193 (Version 1)
Quarter: 2024Q2

REPORT INFORMATION
  Report Type: Spontaneous
  Country: CN (occurrence: CN)
  Receive Date: 20240613
  Receipt Date: 20240613
  Transmission Date: 20240716
  Serious: Yes (Death)
  Sender: FDA-Public Use
  Company Number: CN-Jiangsu Hengrui Medicine Co., Ltd.-2158090

PATIENT
  Age: 61 Year
  Sex: Female

DRUGS (1)
  1. IODIXANOL [Suspect]
     Active Substance: IODIXANOL
     Indication: Angiogram

REACTIONS (4)
  - Hypersensitivity [Fatal]
  - Multiple organ dysfunction syndrome [Fatal]
  - Acinetobacter sepsis [Fatal]
  - Dermatitis exfoliative [Fatal]
